FAERS Safety Report 7717369-2 (Version None)
Quarter: 2011Q3

REPORT INFORMATION
  Report Type: 
  Country: None (occurrence: None)
  Receive Date: 20110830
  Receipt Date: 20110820
  Transmission Date: 20111222
  Serious: Yes (Other)
  Sender: FDA-Public Use
  Company Number: US-JNJFOC-20110710408

PATIENT
  Sex: Female
  Weight: 99.79 kg

DRUGS (4)
  1. SORIATANE [Concomitant]
     Indication: PSORIASIS
  2. STEROIDS NOS [Concomitant]
     Indication: IMMUNOSUPPRESSION
     Route: 042
  3. REMICADE [Suspect]
     Indication: PSORIASIS
     Route: 042
  4. METHOTREXATE [Concomitant]
     Indication: IMMUNOSUPPRESSANT DRUG THERAPY

REACTIONS (6)
  - CARDIAC DISORDER [None]
  - HODGKIN'S DISEASE RECURRENT [None]
  - CARDIAC VALVE DISEASE [None]
  - ERYTHRODERMIC PSORIASIS [None]
  - CEREBROVASCULAR ACCIDENT [None]
  - STAPHYLOCOCCAL INFECTION [None]
